FAERS Safety Report 7626919-6 (Version None)
Quarter: 2011Q3

REPORT INFORMATION
  Report Type: 
  Country: None (occurrence: None)
  Receive Date: 20110714
  Receipt Date: 20110615
  Transmission Date: 20111222
  Serious: Yes (Other)
  Sender: FDA-Public Use
  Company Number: USW201106-000006

PATIENT
  Age: 60 Year
  Sex: Female
  Weight: 59.8748 kg

DRUGS (2)
  1. BOTULINUM TOXIN TYPE B (BOTULINUM TOXIN TYPE B) (BOTULINUM TOXIN TYPE [Suspect]
     Indication: BACK PAIN
     Dosage: INTRATHECAL, INTRAMUSCULAR
     Dates: start: 20040101, end: 20090101
  2. BUPIVICAINE (BUPIVACAINE HYDROCHLORIDE) [Concomitant]

REACTIONS (9)
  - INFLAMMATION [None]
  - NEURALGIA [None]
  - DYSAESTHESIA [None]
  - MUSCULAR WEAKNESS [None]
  - PARAESTHESIA [None]
  - BURNING SENSATION [None]
  - ARACHNOIDITIS [None]
  - INCORRECT ROUTE OF DRUG ADMINISTRATION [None]
  - HYPOAESTHESIA [None]
